FAERS Safety Report 4836038-X (Version None)
Quarter: 2005Q4

REPORT INFORMATION
  Report Type: 
  Country: None (occurrence: None)
  Receive Date: 20051123
  Receipt Date: 20051118
  Transmission Date: 20060501
  Serious: Yes (Hospitalization)
  Sender: FDA-Public Use
  Company Number: US-MERCK-0511USA03190

PATIENT
  Age: 81 Year
  Sex: Female
  Weight: 61 kg

DRUGS (6)
  1. ZOCOR [Suspect]
     Route: 048
     Dates: start: 20050401
  2. AROMASIN [Suspect]
     Indication: BREAST CANCER
     Route: 048
     Dates: start: 20020417
  3. ATROVENT [Suspect]
     Route: 065
     Dates: start: 20000901
  4. VITAMINS (UNSPECIFIED) [Suspect]
     Route: 048
  5. VITAMIN E [Suspect]
     Route: 048
     Dates: start: 20000101
  6. ESTRADIOL AND TESTOSTERONE [Suspect]
     Route: 065
     Dates: start: 20000101

REACTIONS (7)
  - ANAEMIA [None]
  - ATELECTASIS [None]
  - CARDIAC FAILURE CONGESTIVE [None]
  - FALL [None]
  - HAEMANGIOMA OF LIVER [None]
  - HEPATIC HAEMATOMA [None]
  - POST PROCEDURAL HAEMORRHAGE [None]
